FAERS Safety Report 6465640-7 (Version None)
Quarter: 2009Q4

REPORT INFORMATION
  Report Type: 
  Country: None (occurrence: None)
  Receive Date: 20091124
  Receipt Date: 20090915
  Transmission Date: 20100525
  Serious: Yes (Other)
  Sender: FDA-Public Use
  Company Number: 2009028121

PATIENT
  Age: 68 Year
  Sex: Female

DRUGS (1)
  1. TRISENOX [Suspect]
     Dosage: INTRAVENOUS DRIP
     Route: 041

REACTIONS (1)
  - VENTRICULAR TACHYCARDIA [None]
